FAERS Safety Report 18063627 (Version 1)
Quarter: 2020Q3

REPORT INFORMATION
  Report Type: Report from Study
  Country: None (occurrence: US)
  Receive Date: 20200723
  Receipt Date: 20200723
  Transmission Date: 20201103
  Serious: Yes (Hospitalization, Other)
  Sender: FDA-Public Use
  Company Number: US-ABBVIE-20K-163-3492199-00

PATIENT
  Sex: Female

DRUGS (1)
  1. RINVOQ [Suspect]
     Active Substance: UPADACITINIB
     Indication: RHEUMATOID ARTHRITIS
     Route: 048

REACTIONS (5)
  - Arthralgia [Recovering/Resolving]
  - Lymphadenectomy [Unknown]
  - Cellulitis [Recovered/Resolved]
  - Streptococcal sepsis [Recovered/Resolved]
  - Breast cancer stage IV [Unknown]

NARRATIVE: CASE EVENT DATE: 2017
